FAERS Safety Report 6702466-0 (Version None)
Quarter: 2010Q2

REPORT INFORMATION
  Report Type: 
  Country: None (occurrence: None)
  Receive Date: 20100429
  Receipt Date: 20100421
  Transmission Date: 20101027
  Serious: Yes (Other)
  Sender: FDA-Public Use
  Company Number: B0648668A

PATIENT
  Age: 62 Year
  Sex: Male
  Weight: 80 kg

DRUGS (6)
  1. ACYCLOVIR SODIUM [Suspect]
     Route: 042
     Dates: start: 20100320
  2. CEFTRIAXONE [Suspect]
     Dosage: 2G PER DAY
     Route: 042
     Dates: start: 20100320, end: 20100324
  3. NAPROXEN [Concomitant]
     Indication: ANALGESIC THERAPY
     Route: 048
     Dates: end: 20100324
  4. INDAPAMIDE [Concomitant]
     Route: 048
  5. AMLODIPINE [Concomitant]
     Route: 048
  6. SIMVASTATIN [Concomitant]
     Indication: BLOOD CHOLESTEROL INCREASED
     Route: 048

REACTIONS (2)
  - BLOOD CREATININE INCREASED [None]
  - RENAL IMPAIRMENT [None]
